FAERS Safety Report 7277242-3 (Version None)
Quarter: 2011Q1

REPORT INFORMATION
  Report Type: 
  Country: None (occurrence: None)
  Receive Date: 20110113
  Receipt Date: 20110113
  Transmission Date: 20110831
  Serious: Yes (Hospitalization, Other)
  Sender: FDA-Public Use
  Company Number: None

PATIENT
  Age: 47 Year
  Sex: Female
  Weight: 53.0709 kg

DRUGS (1)
  1. TRIAD ALCOHOL PAD NA TRIAL ALCOHOL PAD [Suspect]
     Indication: PROCEDURAL SITE REACTION
     Dates: start: 19930101, end: 20110112

REACTIONS (7)
  - NAUSEA [None]
  - VOMITING [None]
  - DIARRHOEA [None]
  - DEHYDRATION [None]
  - ABDOMINAL PAIN [None]
  - PRODUCT QUALITY ISSUE [None]
  - INFLAMMATION [None]
